FAERS Safety Report 8084157-X (Version None)
Quarter: 2012Q1

REPORT INFORMATION
  Report Type: 
  Country: None (occurrence: None)
  Receive Date: 20120128
  Receipt Date: 20110201
  Transmission Date: 20120608
  Serious: No
  Sender: FDA-Public Use
  Company Number: US-ABBOTT-11P-163-0699368-00

PATIENT
  Age: 16 Year
  Sex: Female

DRUGS (9)
  1. PREDNISONE TAB [Concomitant]
     Indication: CROHN'S DISEASE
  2. HUMIRA [Suspect]
     Indication: CROHN'S DISEASE
     Dosage: INITIAL DOSE 80MG
     Dates: start: 20110118, end: 20110118
  3. HUMIRA [Suspect]
     Indication: CROHN'S DISEASE
     Dates: start: 20110125
  4. VITAMIN D [Concomitant]
     Indication: VITAMIN SUPPLEMENTATION
  5. MULTI-VITAMINS [Concomitant]
     Indication: VITAMIN SUPPLEMENTATION
  6. ASCORBIC ACID [Concomitant]
     Indication: VITAMIN SUPPLEMENTATION
  7. FOLIC ACID [Concomitant]
     Indication: VITAMIN SUPPLEMENTATION
  8. MERCAPTOPURINE [Concomitant]
     Indication: CROHN'S DISEASE
  9. FIBER TABS [Concomitant]
     Indication: CROHN'S DISEASE

REACTIONS (8)
  - ABDOMINAL PAIN [None]
  - INJECTION SITE PAIN [None]
  - CROHN'S DISEASE [None]
  - PAIN IN EXTREMITY [None]
  - ANORECTAL DISCOMFORT [None]
  - FREQUENT BOWEL MOVEMENTS [None]
  - HAEMORRHAGE [None]
  - MYALGIA [None]
